FAERS Safety Report 5758157-6 (Version None)
Quarter: 2008Q2

REPORT INFORMATION
  Report Type: 
  Country: None (occurrence: None)
  Receive Date: 20080602
  Receipt Date: 20080602
  Transmission Date: 20081010
  Serious: Yes (Hospitalization)
  Sender: FDA-Public Use
  Company Number: None

PATIENT
  Sex: Male
  Weight: 64 kg

DRUGS (1)
  1. CISPLATIN [Suspect]
     Dosage: 360 MG
     Dates: end: 20080506

REACTIONS (4)
  - HYPOGLYCAEMIA [None]
  - LYMPHADENOPATHY [None]
  - SKIN HYPERPIGMENTATION [None]
  - STOMATITIS [None]
